FAERS Safety Report 13360352 (Version 1)
Quarter: 2017Q1

REPORT INFORMATION
  Report Type: Other
  Country: BR (occurrence: BR)
  Receive Date: 20170322
  Receipt Date: 20170322
  Transmission Date: 20170429
  Serious: Yes (Disabling, Other)
  Sender: FDA-Public Use
  Company Number: BR-SHIRE-BR201706061

PATIENT
  Sex: Male
  Weight: 70 kg

DRUGS (9)
  1. XARELTO [Concomitant]
     Active Substance: RIVAROXABAN
     Indication: ANTICOAGULANT THERAPY
     Dosage: 15 MG, 1X/DAY:QD
     Route: 065
     Dates: start: 2015
  2. CLONAZEPAM. [Concomitant]
     Active Substance: CLONAZEPAM
     Indication: SLEEP DISORDER
     Dosage: 2.5 MG, 1X/DAY:QD
     Route: 065
     Dates: start: 2015
  3. CARBAMAZEPINA [Concomitant]
     Active Substance: CARBAMAZEPINE
     Indication: CONVULSION PROPHYLAXIS
     Dosage: 200 MG, 1X/DAY:QD
     Route: 065
     Dates: start: 2015
  4. FUROSEMID                          /00032601/ [Concomitant]
     Active Substance: FUROSEMIDE
     Indication: DIURETIC THERAPY
     Dosage: 40 MG, 1X/DAY:QD
     Route: 065
  5. OMEPRAZOLE. [Concomitant]
     Active Substance: OMEPRAZOLE
     Indication: PROPHYLAXIS
     Dosage: 20 MG, 1X/DAY:QD
     Route: 065
  6. ATENOLOL. [Concomitant]
     Active Substance: ATENOLOL
     Indication: CARDIAC DISORDER
     Dosage: 25 MG, 1X/DAY:QD
     Route: 065
     Dates: start: 2015
  7. ELAPRASE [Suspect]
     Active Substance: IDURSULFASE
     Indication: MUCOPOLYSACCHARIDOSIS II
     Dosage: 30 MG (5 VIALS), 1X/WEEK
     Dates: start: 2002
  8. ESCITALOPRAM [Concomitant]
     Active Substance: ESCITALOPRAM OXALATE
     Indication: ANTIDEPRESSANT THERAPY
     Dosage: 20 MG, 1X/DAY:QD (1 TIME IN MORNING)
     Route: 065
     Dates: start: 2017
  9. AMITRYL [Concomitant]
     Active Substance: AMITRIPTYLINE HYDROCHLORIDE
     Indication: ILL-DEFINED DISORDER
     Dosage: 25 MG, 1X/DAY:QD
     Route: 065

REACTIONS (16)
  - Depression [Unknown]
  - Eating disorder [Unknown]
  - Sensation of foreign body [Unknown]
  - Cerebrovascular accident [Unknown]
  - Visual impairment [Unknown]
  - Dyspnoea [Unknown]
  - Drug dose omission [Unknown]
  - Retinitis pigmentosa [Unknown]
  - Mobility decreased [Unknown]
  - Movement disorder [Unknown]
  - Drug ineffective [Unknown]
  - Dysphagia [Unknown]
  - Weight increased [Unknown]
  - Corneal deposits [Unknown]
  - Anxiety [Unknown]
  - Incorrect dose administered [Unknown]

NARRATIVE: CASE EVENT DATE: 2012
